FAERS Safety Report 24269449 (Version 2)
Quarter: 2024Q3

REPORT INFORMATION
  Report Type: Report from Study
  Country: CA (occurrence: None)
  Receive Date: 20240830
  Receipt Date: 20240904
  Transmission Date: 20241016
  Serious: Yes (Hospitalization)
  Sender: ASTRAZENECA
  Company Number: 2024A194584

PATIENT
  Sex: Female

DRUGS (4)
  1. FASENRA [Suspect]
     Active Substance: BENRALIZUMAB
     Indication: Asthma
     Route: 058
     Dates: start: 20181113
  2. PREDNISONE [Concomitant]
     Active Substance: PREDNISONE
  3. VENTOLIN [Concomitant]
     Active Substance: ALBUTEROL SULFATE
  4. BREO ELLIPTA [Concomitant]
     Active Substance: FLUTICASONE FUROATE\VILANTEROL TRIFENATATE

REACTIONS (2)
  - Gastrointestinal obstruction [Unknown]
  - Inappropriate schedule of product administration [Unknown]
